FAERS Safety Report 6611736-6 (Version None)
Quarter: 2010Q1

REPORT INFORMATION
  Report Type: 
  Country: None (occurrence: None)
  Receive Date: 20100218
  Receipt Date: 20091123
  Transmission Date: 20100710
  Serious: Yes (Life-Threatening, Hospitalization)
  Sender: FDA-Public Use
  Company Number: WAES 0909USA04836

PATIENT
  Age: 42 Year
  Sex: Female

DRUGS (4)
  1. ISENTRESS [Suspect]
     Dosage: 400 MG/BID/PO
     Route: 048
     Dates: start: 20080101, end: 20090923
  2. VIREAD [Concomitant]
  3. DARUNAVIR [Concomitant]
  4. TENOFOVIR [Concomitant]

REACTIONS (3)
  - ABDOMINAL PAIN UPPER [None]
  - HEPATIC FUNCTION ABNORMAL [None]
  - NAUSEA [None]
